FAERS Safety Report 6635944-3 (Version None)
Quarter: 2010Q1

REPORT INFORMATION
  Report Type: 
  Country: None (occurrence: None)
  Receive Date: 20100316
  Receipt Date: 20100309
  Transmission Date: 20100710
  Serious: Yes (Hospitalization, Other)
  Sender: FDA-Public Use
  Company Number: FR-BRISTOL-MYERS SQUIBB COMPANY-14940712

PATIENT
  Age: 50 Year
  Sex: Female

DRUGS (9)
  1. ORENCIA [Suspect]
     Indication: RHEUMATOID ARTHRITIS
     Dosage: RECENT INF-11JAN10 NO OF INF: 20
     Route: 042
     Dates: start: 20080501
  2. DAFALGAN [Suspect]
  3. METHOTREXATE [Suspect]
     Indication: RHEUMATOID ARTHRITIS
     Dosage: LAST DOSE-10JAN10
     Route: 048
     Dates: start: 20010101, end: 20100110
  4. CORTANCYL [Suspect]
     Route: 048
  5. LAMALINE [Suspect]
  6. MOBIC [Suspect]
  7. MOPRAL [Suspect]
  8. MYOLASTAN [Suspect]
  9. SPECIAFOLDINE [Concomitant]

REACTIONS (2)
  - CYTOLYTIC HEPATITIS [None]
  - HEPATITIS E [None]
